FAERS Safety Report 4783561-2 (Version None)
Quarter: 2005Q3

REPORT INFORMATION
  Report Type: 
  Country: None (occurrence: None)
  Receive Date: 20050914
  Receipt Date: 20040810
  Transmission Date: 20060218
  Serious: Yes (Hospitalization)
  Sender: FDA-Public Use
  Company Number: 163-20785-04080200

PATIENT
  Age: 61 Year
  Sex: Male

DRUGS (25)
  1. THALOMID [Suspect]
     Indication: MULTIPLE MYELOMA
     Dosage: 200 MG, DAILY, ORAL
     Route: 048
     Dates: start: 20040716, end: 20040719
  2. DEXAMETHASONE [Suspect]
     Indication: MULTIPLE MYELOMA
     Dosage: 40 MG, DAILY, ORAL
     Route: 048
     Dates: start: 20040716, end: 20040719
  3. CISPLATIN [Suspect]
     Indication: MULTIPLE MYELOMA
     Dosage: 10 MG/M2, INTRAVENOUS
     Route: 042
     Dates: start: 20040716, end: 20040719
  4. CYCLOPHOSPHAMIDE [Suspect]
     Indication: MULTIPLE MYELOMA
     Dosage: 400 MG/M2, INTRAVENOUS
     Route: 042
     Dates: start: 20040716, end: 20040719
  5. ETOPOSIDE [Suspect]
     Indication: MULTIPLE MYELOMA
     Dosage: 40 MG/M2,
     Dates: start: 20040716, end: 20040719
  6. PEGFILGASTRIM (PEGFILGRASTRIM) (UNKNOWN) [Suspect]
     Indication: HAEMATOPOIETIC STEM CELL MOBILISATION
     Dosage: 6 MG, SUBCUTANEOUS
     Route: 058
     Dates: start: 20040721, end: 20040721
  7. LOVENOX (HEPARIN-FRACTION, SODIUM SALT) (UNKNOWN) [Concomitant]
  8. ALLEGRA (FEXOFENADINE HYDROCHLORIDE) (UNKNOWN) [Concomitant]
  9. FLOMAX (TAMSULOSIN HYDROCHLORIDE) (UNKNOWN) [Concomitant]
  10. METOPROLOL (METOPROLOL) (UNKNOWN) [Concomitant]
  11. COLCHICINE (COLCHICINE) (UNKNOWN) [Concomitant]
  12. NITROGLYCERIN (GLYCERYL TRINITRATE) (UNKNOWN) [Concomitant]
  13. ACIPHEX (RABEPRAZOLE SODIUM) (UNKNOWN) [Concomitant]
  14. LISINOPRIL (LISINOPRIL) (UNKNOWN) [Concomitant]
  15. ZETIA (UNKNOWN) [Concomitant]
  16. MVI (MULTIVITAMINS) (TABLETS) [Concomitant]
  17. VITAMIN B6 + B12 (CYANOCOBALAMIN TABLET) [Concomitant]
  18. VITAMIN B6 (PYRIDOXINE HYDROCHLORIDE) (TABLETS) [Concomitant]
  19. FOLIC ACID (FOLIC ACID) (TABLETS) [Concomitant]
  20. CALCIUM (CALCIUM) (TABLETS) [Concomitant]
  21. ZINC (ZINC) (TABLETS) [Concomitant]
  22. NEURONTIN [Concomitant]
  23. LASIX [Concomitant]
  24. OXYCONTIN [Concomitant]
  25. OXYCODONE HCL [Concomitant]

REACTIONS (3)
  - NEUROPATHY [None]
  - OEDEMA PERIPHERAL [None]
  - PATHOLOGICAL FRACTURE [None]
